FAERS Safety Report 6921556-0 (Version None)
Quarter: 2010Q3

REPORT INFORMATION
  Report Type: 
  Country: None (occurrence: None)
  Receive Date: 20100812
  Receipt Date: 20100810
  Transmission Date: 20110219
  Serious: Yes (Death)
  Sender: FDA-Public Use
  Company Number: PHHY2010US51827

PATIENT
  Sex: Male

DRUGS (1)
  1. AFINITOR [Suspect]
     Indication: PROSTATE CANCER
     Dosage: 10 MG DAILY
     Route: 048
     Dates: start: 20100622

REACTIONS (1)
  - DEATH [None]
